FAERS Safety Report 15534695 (Version 2)
Quarter: 2018Q4

REPORT INFORMATION
  Report Type: Report from Study
  Country: FR (occurrence: FR)
  Receive Date: 20181022
  Receipt Date: 20181030
  Transmission Date: 20190205
  Serious: Yes (Hospitalization, Other)
  Sender: FDA-Public Use
  Company Number: FR-IPSEN BIOPHARMACEUTICALS, INC.-2018-15696

PATIENT
  Age: 14 Year
  Sex: Female
  Weight: 40.6 kg

DRUGS (3)
  1. INCRELEX [Suspect]
     Active Substance: MECASERMIN
     Indication: GROWTH FAILURE
     Route: 058
     Dates: start: 20110711
  2. ESTROGENS [Concomitant]
     Active Substance: ESTROGENS
     Indication: OOPHORECTOMY
     Dates: start: 20150511
  3. RAMIPRIL. [Concomitant]
     Active Substance: RAMIPRIL
     Indication: HYPOALBUMINAEMIA
     Dates: start: 20120823

REACTIONS (1)
  - Papillary thyroid cancer [Not Recovered/Not Resolved]

NARRATIVE: CASE EVENT DATE: 20170920
